FAERS Safety Report 7514665-9 (Version None)
Quarter: 2011Q2

REPORT INFORMATION
  Report Type: 
  Country: None (occurrence: None)
  Receive Date: 20110601
  Receipt Date: 20101222
  Transmission Date: 20111010
  Serious: Yes (Hospitalization, Other)
  Sender: FDA-Public Use
  Company Number: US-BAYER-201011511NA

PATIENT
  Age: 38 Year
  Sex: Female
  Weight: 70.295 kg

DRUGS (4)
  1. IBUPROFEN [Concomitant]
  2. YASMIN [Suspect]
     Indication: PREMENSTRUAL SYNDROME
     Dosage: UNK
     Route: 048
     Dates: end: 20080115
  3. SARAFEM [Concomitant]
     Dosage: 20 MG, QD
  4. ALLEGRA [Concomitant]

REACTIONS (2)
  - THROMBOSIS [None]
  - DEEP VEIN THROMBOSIS [None]
